FAERS Safety Report 12946114 (Version 1)
Quarter: 2016Q4

REPORT INFORMATION
  Report Type: Report from Study
  Country: US (occurrence: US)
  Receive Date: 20161115
  Receipt Date: 20161115
  Transmission Date: 20170207
  Serious: Yes (Other)
  Sender: FDA-Public Use
  Company Number: US-GILEAD-2016-0222136

PATIENT
  Age: 36 Year
  Sex: Male

DRUGS (1)
  1. LEDIPASVIR/SOFOSBUVIR [Suspect]
     Active Substance: LEDIPASVIR\SOFOSBUVIR
     Indication: CHRONIC HEPATITIS C
     Dosage: 1 DF, QD
     Route: 048
     Dates: start: 20160419, end: 20160711

REACTIONS (14)
  - Fatigue [Not Recovered/Not Resolved]
  - Confusional state [Not Recovered/Not Resolved]
  - Depression [Not Recovered/Not Resolved]
  - Bradyphrenia [Not Recovered/Not Resolved]
  - Dizziness [Not Recovered/Not Resolved]
  - Disturbance in attention [Unknown]
  - Unevaluable event [Unknown]
  - Feeling abnormal [Not Recovered/Not Resolved]
  - Anger [Unknown]
  - Disability [Not Recovered/Not Resolved]
  - Visual impairment [Unknown]
  - Photophobia [Unknown]
  - Feeling abnormal [Recovering/Resolving]
  - Frustration tolerance decreased [Unknown]
